FAERS Safety Report 8138431 (Version 3)
Quarter: 2012Q4

REPORT INFORMATION
  Report Type: 
  Country: DE (occurrence: DE)
  Receive Date: 20110915
  Receipt Date: 20121122
  Transmission Date: 20130627
  Serious: Yes (Hospitalization, Other)
  Sender: FDA-Public Use
  Company Number: DE-ACTELION-A-CH2011-53613

PATIENT
  Age: 3 Month
  Sex: Male
  Weight: 6 kg

DRUGS (1)
  1. ZAVESCA [Suspect]
     Indication: NIEMANN-PICK DISEASE
     Dosage: 5 mg, od
     Route: 048
     Dates: start: 20110815, end: 20110818

REACTIONS (3)
  - Diarrhoea [Recovered/Resolved]
  - Dysentery [Recovered/Resolved]
  - Weight decreased [Recovered/Resolved]
